FAERS Safety Report 5198082-5 (Version None)
Quarter: 2006Q4

REPORT INFORMATION
  Report Type: 
  Country: None (occurrence: None)
  Receive Date: 20061228
  Receipt Date: 20061215
  Transmission Date: 20070319
  Serious: Yes (Hospitalization)
  Sender: FDA-Public Use
  Company Number: 2006S1010296

PATIENT
  Age: 71 Year
  Sex: Female
  Weight: 90.7194 kg

DRUGS (12)
  1. FENTANYL TRANSDERMAL SYSTEM [Suspect]
     Indication: PAIN
     Dosage: 75 UG/HR;Q3D;TDER
     Dates: start: 20050101, end: 20061101
  2. LEVOTHYROXINE SODIUM [Concomitant]
  3. OLMESARTAN [Concomitant]
  4. PANTOPRAZOLE SODIUM [Concomitant]
  5. HYDROXYCHLOROQUINE SULFATE [Concomitant]
  6. FUROSEMIDE [Concomitant]
  7. CLOPIDOGREL [Concomitant]
  8. FENOFIBRATE [Concomitant]
  9. SOLIFENACIN [Concomitant]
  10. DIGOXIN [Concomitant]
  11. ATENOLOL [Concomitant]
  12. INSULIN [Concomitant]

REACTIONS (4)
  - DEHYDRATION [None]
  - HYPOTENSION [None]
  - PAIN [None]
  - PHARMACEUTICAL PRODUCT COMPLAINT [None]
